FAERS Safety Report 5213440-8 (Version None)
Quarter: 2007Q1

REPORT INFORMATION
  Report Type: 
  Country: None (occurrence: None)
  Receive Date: 20070119
  Receipt Date: 20070110
  Transmission Date: 20070707
  Serious: Yes (Other)
  Sender: FDA-Public Use
  Company Number: PHHO2006AU16811

PATIENT
  Age: 52 Year
  Sex: Male

DRUGS (3)
  1. PREDNISOLONE [Concomitant]
     Indication: MULTIPLE MYELOMA
     Dosage: 25 MG, EVERY 48 HOURS
     Route: 048
     Dates: start: 20040105
  2. THALIDOMIDE [Concomitant]
     Indication: MULTIPLE MYELOMA
     Dosage: 100 MG, QD
     Route: 048
     Dates: start: 20040105, end: 20041220
  3. ZOLEDRONIC ACID [Suspect]
     Indication: MULTIPLE MYELOMA
     Dosage: 4 MG, ONCE A MONTH
     Route: 042
     Dates: start: 20040105

REACTIONS (8)
  - ACTINOMYCOSIS [None]
  - BONE DEBRIDEMENT [None]
  - GRANULOMA [None]
  - IMPAIRED HEALING [None]
  - ORAL PAIN [None]
  - ORAL SOFT TISSUE DISORDER [None]
  - SEPSIS [None]
  - TOOTH EXTRACTION [None]
